FAERS Safety Report 21007623 (Version 2)
Quarter: 2022Q3

REPORT INFORMATION
  Report Type: Spontaneous
  Country: JP (occurrence: JP)
  Receive Date: 20220626
  Receipt Date: 20220805
  Transmission Date: 20221026
  Serious: Yes (Hospitalization)
  Sender: FDA-Public Use
  Company Number: JP-TAKEDA-2022TJP059949

PATIENT
  Age: 78 Year
  Sex: Female
  Weight: 45.2 kg

DRUGS (9)
  1. TRINTELLIX [Suspect]
     Active Substance: VORTIOXETINE HYDROBROMIDE
     Indication: Depression
     Dosage: 10 MILLIGRAM, QD
     Route: 048
     Dates: start: 20220520, end: 20220619
  2. HERBALS [Concomitant]
     Active Substance: HERBALS
     Indication: Product used for unknown indication
     Dosage: UNK
     Route: 048
     Dates: start: 202110, end: 20220620
  3. CONSTAN [Concomitant]
     Indication: Anxiety
     Dosage: UNK
     Route: 048
     Dates: start: 202110, end: 20220620
  4. CLOXAZOLAM [Concomitant]
     Active Substance: CLOXAZOLAM
     Indication: Anxiety
     Dosage: UNK
     Route: 048
     Dates: start: 202110, end: 20220620
  5. HERBALS [Concomitant]
     Active Substance: HERBALS
     Indication: Decreased appetite
     Dosage: 7.5 GRAM, TID
     Route: 048
     Dates: start: 20220531, end: 20220628
  6. KOSOSAN [Concomitant]
     Indication: Depression
     Dosage: 7.5 GRAM, TID
     Route: 048
     Dates: start: 20220531, end: 20220628
  7. HERBALS [Concomitant]
     Active Substance: HERBALS
     Indication: Diarrhoea
     Dosage: 7.5 GRAM, TID
     Route: 048
     Dates: start: 20220622, end: 20220628
  8. ZINC [Concomitant]
     Active Substance: ZINC
     Indication: Zinc deficiency
     Dosage: 50 MILLIGRAM, BID
     Route: 048
     Dates: start: 20220615, end: 20220628
  9. TEPRENONE [Concomitant]
     Active Substance: TEPRENONE
     Indication: Gastritis
     Dosage: 1.5 GRAM, TID
     Route: 048
     Dates: start: 20220615, end: 20220628

REACTIONS (1)
  - Hyponatraemia [Recovering/Resolving]

NARRATIVE: CASE EVENT DATE: 20220531
